FAERS Safety Report 5006863-3 (Version None)
Quarter: 2006Q2

REPORT INFORMATION
  Report Type: 
  Country: None (occurrence: None)
  Receive Date: 20060519
  Receipt Date: 20060509
  Transmission Date: 20061013
  Serious: Yes (Hospitalization)
  Sender: FDA-Public Use
  Company Number: JP-BRISTOL-MYERS SQUIBB COMPANY-13371562

PATIENT
  Age: 49 Year
  Sex: Male
  Weight: 50 kg

DRUGS (16)
  1. ENTECAVIR [Suspect]
     Indication: HEPATITIS B
     Dosage: FROM 08-JAN-2004 TO 23-JUN-2004 DOSING 0.01 MG DAILY ORAL, INCREASED TO 0.5 MG DAILY ON 24-JUN-2004
     Route: 048
     Dates: start: 20040108
  2. LENDORMIN [Concomitant]
     Indication: INSOMNIA
     Route: 048
     Dates: start: 20050623
  3. DORAL [Concomitant]
     Indication: INSOMNIA
     Route: 048
     Dates: start: 20050421
  4. MYONAL [Concomitant]
     Indication: CERVICOBRACHIAL SYNDROME
     Route: 048
     Dates: start: 20050911
  5. LOXONIN [Concomitant]
     Indication: HEADACHE
     Route: 048
     Dates: start: 20050911
  6. PL [Concomitant]
     Indication: CHILLS
     Route: 048
     Dates: start: 20051213
  7. MYSER [Concomitant]
     Indication: RASH
     Dosage: 1-3 TIMES DAILY
     Route: 061
     Dates: start: 20050915
  8. ZITHROMAC [Concomitant]
     Dates: start: 20040624, end: 20060330
  9. ASTOMIN [Concomitant]
     Dates: start: 20040624, end: 20060330
  10. AMOBAN [Concomitant]
     Dates: start: 20040624, end: 20060330
  11. MARZULENE-S [Concomitant]
     Dates: start: 20040624, end: 20060330
  12. CRAVIT [Concomitant]
     Dates: start: 20040624, end: 20060330
  13. LIGHTGEN SYRUP T [Concomitant]
     Dates: start: 20040624, end: 20060330
  14. PENTAZOCINE LACTATE [Concomitant]
     Dates: start: 20040624, end: 20060330
  15. DEPAS [Concomitant]
     Dates: start: 20040624, end: 20060330
  16. CHINESE HERBS [Concomitant]
     Dates: start: 20040624, end: 20060330

REACTIONS (1)
  - DERMAL CYST [None]
